FAERS Safety Report 12691592 (Version 1)
Quarter: 2016Q3

REPORT INFORMATION
  Report Type: Spontaneous
  Country: JP (occurrence: JP)
  Receive Date: 20160826
  Receipt Date: 20160826
  Transmission Date: 20161109
  Serious: Yes (Hospitalization, Other)
  Sender: FDA-Public Use
  Company Number: JP-GLAXOSMITHKLINE-B0733293A

PATIENT
  Age: 68 Year
  Sex: Female
  Weight: 45 kg

DRUGS (9)
  1. LAMOTRIGINE. [Suspect]
     Active Substance: LAMOTRIGINE
     Indication: EPILEPSY
     Route: 048
     Dates: start: 20110621, end: 20110707
  2. METHYCOBAL [Concomitant]
     Active Substance: METHYLCOBALAMIN
     Route: 048
  3. DEPAKENE [Concomitant]
     Active Substance: VALPROIC ACID
     Route: 048
  4. LANDSEN [Concomitant]
     Active Substance: CLONAZEPAM
     Route: 048
  5. CALONAL [Concomitant]
     Active Substance: ACETAMINOPHEN
     Route: 048
  6. BUSCOPAN [Concomitant]
     Active Substance: BUTYLSCOPOLAMINE BROMIDE
     Route: 048
  7. CLONAZEPAM. [Concomitant]
     Active Substance: CLONAZEPAM
     Dosage: UNK
  8. LOXONIN [Concomitant]
     Active Substance: LOXOPROFEN SODIUM
     Route: 048
  9. PARIET [Concomitant]
     Active Substance: RABEPRAZOLE SODIUM
     Route: 048

REACTIONS (14)
  - Lymphadenopathy [Recovering/Resolving]
  - Blister [Unknown]
  - Pyrexia [Recovering/Resolving]
  - Oropharyngeal pain [Recovering/Resolving]
  - Rash generalised [Recovering/Resolving]
  - Generalised erythema [Unknown]
  - Scab [Unknown]
  - Ocular hyperaemia [Unknown]
  - Perianal erythema [Unknown]
  - Vulvar erosion [Unknown]
  - Oral mucosa erosion [Unknown]
  - Genital erythema [Unknown]
  - Stevens-Johnson syndrome [Recovering/Resolving]
  - Epidermal necrosis [Unknown]

NARRATIVE: CASE EVENT DATE: 20110702
